FAERS Safety Report 14763296 (Version 9)
Quarter: 2020Q3

REPORT INFORMATION
  Report Type: Spontaneous
  Country: US (occurrence: US)
  Receive Date: 20180416
  Receipt Date: 20200722
  Transmission Date: 20201102
  Serious: Yes (Congenital Anomaly, Other)
  Sender: FDA-Public Use
  Company Number: PHEH2018US013249

PATIENT
  Sex: Female

DRUGS (3)
  1. ZOFRAN [Suspect]
     Active Substance: ONDANSETRON HYDROCHLORIDE
     Indication: FOETAL EXPOSURE DURING PREGNANCY
     Route: 064
  2. ZOFRAN [Suspect]
     Active Substance: ONDANSETRON HYDROCHLORIDE
     Indication: FOETAL EXPOSURE DURING PREGNANCY
     Dosage: MOTHER DOSE: 04 MG, Q6H
     Route: 064
  3. ONDANSETRON TEVA [Suspect]
     Active Substance: ONDANSETRON
     Indication: FOETAL EXPOSURE DURING PREGNANCY
     Dosage: MOTHER DOSE: UNK
     Route: 064

REACTIONS (61)
  - Heart disease congenital [Unknown]
  - Cerebral palsy [Unknown]
  - Patent ductus arteriosus [Unknown]
  - Pneumonia [Unknown]
  - Failure to thrive [Unknown]
  - Foetal exposure during pregnancy [Unknown]
  - Right ventricular hypertrophy [Unknown]
  - Gastroenteritis [Unknown]
  - Pleural effusion [Unknown]
  - Limb asymmetry [Unknown]
  - Cough [Unknown]
  - Asthma [Unknown]
  - Hyperkalaemia [Unknown]
  - Cardiac failure congestive [Unknown]
  - Foetal growth restriction [Unknown]
  - Retinopathy of prematurity [Unknown]
  - Decreased appetite [Unknown]
  - Rhinitis [Unknown]
  - Premature baby [Unknown]
  - Mitral valve disease mixed [Unknown]
  - Fluid retention [Unknown]
  - Weight gain poor [Unknown]
  - Constipation [Unknown]
  - Tachypnoea [Unknown]
  - Diarrhoea [Unknown]
  - Jaundice neonatal [Unknown]
  - Eye swelling [Unknown]
  - Developmental delay [Unknown]
  - Cellulitis [Unknown]
  - Dyspnoea [Unknown]
  - Gastric mucosal lesion [Unknown]
  - Atrial septal defect [Unknown]
  - Pulmonary hypertension [Unknown]
  - Tympanic membrane perforation [Unknown]
  - Right ventricular enlargement [Unknown]
  - Metabolic acidosis [Unknown]
  - Speech disorder [Unknown]
  - Bronchitis [Unknown]
  - Poor feeding infant [Unknown]
  - Motor dysfunction [Unknown]
  - Acute kidney injury [Unknown]
  - Pyrexia [Unknown]
  - Vomiting [Unknown]
  - Dehydration [Unknown]
  - Rash [Unknown]
  - Gait disturbance [Unknown]
  - Upper respiratory tract infection [Unknown]
  - Nasopharyngitis [Unknown]
  - Atrioventricular septal defect [Unknown]
  - Conjunctivitis [Unknown]
  - Influenza [Unknown]
  - Viral infection [Unknown]
  - Arthropod bite [Unknown]
  - Left-to-right cardiac shunt [Unknown]
  - Apnoea [Unknown]
  - Injury [Unknown]
  - Atelectasis [Unknown]
  - Language disorder [Unknown]
  - Respiratory syncytial virus infection [Unknown]
  - Low birth weight baby [Unknown]
  - Otitis media [Unknown]
